FAERS Safety Report 16856814 (Version 1)
Quarter: 2019Q3

REPORT INFORMATION
  Report Type: Spontaneous
  Country: IT (occurrence: IT)
  Receive Date: 20190926
  Receipt Date: 20190926
  Transmission Date: 20191005
  Serious: Yes (Other)
  Sender: FDA-Public Use
  Company Number: IT-MYLANLABS-2019M1089572

PATIENT
  Age: 34 Year
  Sex: Male

DRUGS (1)
  1. AZELASTINE/FLUTICASONE [Suspect]
     Active Substance: AZELASTINE HYDROCHLORIDE\FLUTICASONE PROPIONATE
     Indication: CONJUNCTIVITIS ALLERGIC
     Dosage: UNK

REACTIONS (5)
  - Dry mouth [Unknown]
  - Nystagmus [Unknown]
  - Neck pain [Unknown]
  - Vertigo [Unknown]
  - Tremor [Unknown]

NARRATIVE: CASE EVENT DATE: 20190421
